FAERS Safety Report 12892621 (Version 5)
Quarter: 2017Q1

REPORT INFORMATION
  Report Type: Report from Study
  Country: AT (occurrence: AT)
  Receive Date: 20161028
  Receipt Date: 20170204
  Transmission Date: 20170428
  Serious: Yes (Hospitalization, Other)
  Sender: FDA-Public Use
  Company Number: PHHY2016AT103703

PATIENT
  Sex: Female

DRUGS (12)
  1. LEVETIRACETAM. [Concomitant]
     Active Substance: LEVETIRACETAM
     Indication: PRODUCT USED FOR UNKNOWN INDICATION
     Dosage: 1000 MG, BID (1-0-1)
     Route: 065
  2. TAMOXIFEN [Concomitant]
     Active Substance: TAMOXIFEN
     Indication: PRODUCT USED FOR UNKNOWN INDICATION
     Dosage: 20 MG, BID (1-0-1)
     Route: 065
  3. AFINITOR [Suspect]
     Active Substance: EVEROLIMUS
     Indication: BREAST CANCER METASTATIC
     Dosage: 10 MG
     Route: 065
     Dates: start: 201603
  4. FRAGMIN [Concomitant]
     Active Substance: DALTEPARIN SODIUM
     Indication: PRODUCT USED FOR UNKNOWN INDICATION
     Dosage: 7500 IE, 2X1, BID
     Route: 065
  5. LASIX [Concomitant]
     Active Substance: FUROSEMIDE
     Indication: PRODUCT USED FOR UNKNOWN INDICATION
     Dosage: 40 MG, 1-1/2-0
     Route: 048
  6. TRITACE [Concomitant]
     Active Substance: RAMIPRIL
     Indication: PRODUCT USED FOR UNKNOWN INDICATION
     Dosage: 1.25 MG, QD (1-0-0)
     Route: 065
  7. ZYRTEC [Concomitant]
     Active Substance: CETIRIZINE HYDROCHLORIDE
     Indication: PRODUCT USED FOR UNKNOWN INDICATION
     Dosage: 10 MG, QD ( 0-1-0)
     Route: 065
  8. CONCOR [Concomitant]
     Active Substance: BISOPROLOL FUMARATE
     Indication: PRODUCT USED FOR UNKNOWN INDICATION
     Dosage: 5 MG, 1/2-0-1
     Route: 065
  9. AFINITOR [Suspect]
     Active Substance: EVEROLIMUS
     Dosage: 5 MG, QD
     Route: 065
     Dates: start: 20160530
  10. EXEMESTAN [Concomitant]
     Active Substance: EXEMESTANE
     Indication: PRODUCT USED FOR UNKNOWN INDICATION
     Dosage: 25 MG, QD
     Route: 065
     Dates: start: 20150821
  11. VIMPAT [Concomitant]
     Active Substance: LACOSAMIDE
     Indication: PRODUCT USED FOR UNKNOWN INDICATION
     Dosage: 100 MG, BID (1-0-1)
     Route: 065
  12. MARCOUMAR [Concomitant]
     Active Substance: PHENPROCOUMON
     Indication: PRODUCT USED FOR UNKNOWN INDICATION
     Route: 065

REACTIONS (21)
  - Malignant neoplasm progression [Unknown]
  - Nausea [Recovered/Resolved]
  - Oedema peripheral [Unknown]
  - Stomatitis [Recovering/Resolving]
  - Headache [Recovered/Resolved]
  - Lymphadenopathy [Unknown]
  - Cardiac failure [Recovered/Resolved]
  - Metastases to lung [Unknown]
  - Renal cyst haemorrhage [Not Recovered/Not Resolved]
  - Cardiomyopathy [Unknown]
  - Atrial fibrillation [Unknown]
  - Ageusia [Recovering/Resolving]
  - Adrenomegaly [Unknown]
  - Renal disorder [Not Recovered/Not Resolved]
  - Abdominal pain [Recovered/Resolved]
  - Rash [Recovering/Resolving]
  - Epistaxis [Recovering/Resolving]
  - Chest discomfort [Unknown]
  - Pruritus [Unknown]
  - Dyspnoea [Unknown]
  - Concomitant disease aggravated [Recovered/Resolved]

NARRATIVE: CASE EVENT DATE: 201605
